FAERS Safety Report 17422525 (Version 1)
Quarter: 2020Q1

REPORT INFORMATION
  Report Type: Spontaneous
  Country: NL (occurrence: NL)
  Receive Date: 20200215
  Receipt Date: 20200215
  Transmission Date: 20200409
  Serious: Yes (Hospitalization)
  Sender: FDA-Public Use
  Company Number: NL-AUROBINDO-AUR-APL-2020-007246

PATIENT
  Age: 75 Year
  Sex: Female
  Weight: 68 kg

DRUGS (3)
  1. VELCADE [Suspect]
     Active Substance: BORTEZOMIB
     Indication: PLASMA CELL MYELOMA
     Dosage: 1.3 MILLIGRAM/SQ. METER (DAY 1,4,8,11 EACH CYCLE)
     Route: 058
     Dates: start: 20190606
  2. LENALIDOMIDE [Suspect]
     Active Substance: LENALIDOMIDE
     Indication: PLASMA CELL MYELOMA
     Dosage: 25 MILLIGRAM (DAY 1-14, CYCLE 21 DAYS)
     Route: 065
  3. DEXAMETHASON [Suspect]
     Active Substance: DEXAMETHASONE
     Indication: PLASMA CELL MYELOMA
     Dosage: 20 MILLIGRAM (CYCLE OF 21 DAYS 1, 2, 4, 5, 8, 9, 11, 12)
     Route: 065

REACTIONS (1)
  - Diarrhoea [Recovered/Resolved with Sequelae]

NARRATIVE: CASE EVENT DATE: 20190704
